FAERS Safety Report 6050570-5 (Version None)
Quarter: 2009Q1

REPORT INFORMATION
  Report Type: 
  Country: None (occurrence: None)
  Receive Date: 20090122
  Receipt Date: 20090122
  Transmission Date: 20090719
  Serious: Yes (Death, Hospitalization)
  Sender: FDA-Public Use
  Company Number: None

PATIENT
  Sex: Female
  Weight: 107.2 kg

DRUGS (6)
  1. CYCLOPHOSPHAMIDE [Suspect]
     Dosage: 2260 MG
  2. CYTARABINE [Suspect]
     Dosage: 1360 MG
  3. DOXORUBICIN HYDROCHLORIDE [Suspect]
     Dosage: 171 MG
  4. METHOTREXATE [Suspect]
     Dosage: 30 MG
  5. PEG-L-ASPARAGINASE (K-H) [Suspect]
     Dosage: 11450 IU
  6. VINCRISTINE SULFATE [Suspect]
     Dosage: 10 MG

REACTIONS (7)
  - ABDOMINAL PAIN [None]
  - MULTI-ORGAN FAILURE [None]
  - PANCYTOPENIA [None]
  - PYREXIA [None]
  - RENAL FAILURE [None]
  - RESPIRATORY FAILURE [None]
  - SEPSIS [None]
